FAERS Safety Report 26019542 (Version 1)
Quarter: 2025Q4

REPORT INFORMATION
  Report Type: Spontaneous
  Country: US (occurrence: None)
  Receive Date: 20251107
  Receipt Date: 20251107
  Transmission Date: 20260117
  Serious: Yes (Other)
  Sender: FDA-CTU
  Company Number: None

PATIENT
  Age: 78 Year
  Sex: Female
  Weight: 45.9 kg

DRUGS (3)
  1. LEVOFLOXACIN [Suspect]
     Active Substance: LEVOFLOXACIN
     Indication: Pneumonia
     Dosage: OTHER QUANTITY : 10 TABLET(S);?FREQUENCY : DAILY;?
     Route: 048
     Dates: start: 20251031, end: 20251101
  2. AMLODIPINE [Concomitant]
     Active Substance: AMLODIPINE BESYLATE
  3. TIMOLOL [Concomitant]
     Active Substance: TIMOLOL

REACTIONS (6)
  - Nightmare [None]
  - Pain in extremity [None]
  - Limb injury [None]
  - Tremor [None]
  - Pain in extremity [None]
  - Dizziness [None]

NARRATIVE: CASE EVENT DATE: 20251106
